FAERS Safety Report 18762645 (Version 1)
Quarter: 2021Q1

REPORT INFORMATION
  Report Type: Spontaneous
  Country: FR (occurrence: FR)
  Receive Date: 20210120
  Receipt Date: 20210120
  Transmission Date: 20210419
  Serious: Yes (Hospitalization)
  Sender: FDA-Public Use
  Company Number: FR-PFIZER INC-2021026939

PATIENT
  Age: 64 Year
  Sex: Male

DRUGS (1)
  1. MEDROL [Suspect]
     Active Substance: METHYLPREDNISOLONE
     Indication: VOMITING
     Dosage: 16 MG
     Route: 048
     Dates: start: 2019, end: 202012

REACTIONS (3)
  - Adrenal insufficiency [Not Recovered/Not Resolved]
  - Self-medication [Recovering/Resolving]
  - Off label use [Unknown]

NARRATIVE: CASE EVENT DATE: 2019
